FAERS Safety Report 11627797 (Version 1)
Quarter: 2015Q4

REPORT INFORMATION
  Report Type: Spontaneous
  Country: US (occurrence: None)
  Receive Date: 20151013
  Receipt Date: 20151013
  Transmission Date: 20160304
  Serious: Yes (Death, Hospitalization)
  Sender: FDA-Public Use
  Company Number: None

PATIENT
  Age: 8 Year
  Sex: Female
  Weight: 41.1 kg

DRUGS (2)
  1. BUSULFAN [Suspect]
     Active Substance: BUSULFAN
     Dates: end: 20150615
  2. FLUDARABINE PHOSPHATE. [Suspect]
     Active Substance: FLUDARABINE PHOSPHATE
     Dates: end: 20150614

REACTIONS (5)
  - Cystitis haemorrhagic [None]
  - Graft versus host disease in skin [None]
  - Multi-organ failure [None]
  - Cytomegalovirus viraemia [None]
  - Respiratory failure [None]

NARRATIVE: CASE EVENT DATE: 20151007
